FAERS Safety Report 12751879 (Version 1)
Quarter: 2016Q3

REPORT INFORMATION
  Report Type: Spontaneous
  Country: US (occurrence: US)
  Receive Date: 20160915
  Receipt Date: 20160915
  Transmission Date: 20161109
  Serious: No
  Sender: FDA-Public Use
  Company Number: US-JAZZ-2016-US-015672

PATIENT
  Sex: Male

DRUGS (1)
  1. ERWINAZE [Suspect]
     Active Substance: ASPARAGINASE ERWINIA CHRYSANTHEMI
     Indication: PRODUCT USED FOR UNKNOWN INDICATION

REACTIONS (1)
  - Underdose [Unknown]
